FAERS Safety Report 7486015-8 (Version None)
Quarter: 2011Q2

REPORT INFORMATION
  Report Type: 
  Country: None (occurrence: None)
  Receive Date: 20110517
  Receipt Date: 20110509
  Transmission Date: 20111010
  Serious: Yes (Other)
  Sender: FDA-Public Use
  Company Number: CHPA2011US06495

PATIENT
  Age: 79 Year
  Sex: Male
  Weight: 62.585 kg

DRUGS (2)
  1. THERAFLU VAPOR PATCH [Suspect]
     Indication: RESPIRATORY DISORDER
     Dosage: 1 DF, ONCE/SINGLE
     Dates: start: 20110507, end: 20110507
  2. THERAFLU VAPOR PATCH [Suspect]
     Indication: UPPER RESPIRATORY TRACT CONGESTION

REACTIONS (5)
  - RASH [None]
  - URTICARIA [None]
  - DYSPNOEA [None]
  - LIP SWELLING [None]
  - OFF LABEL USE [None]
